FAERS Safety Report 7409414-9 (Version None)
Quarter: 2011Q2

REPORT INFORMATION
  Report Type: 
  Country: None (occurrence: None)
  Receive Date: 20110412
  Receipt Date: 20110321
  Transmission Date: 20111010
  Serious: Yes (Hospitalization, Other)
  Sender: FDA-Public Use
  Company Number: US-BAYER-2010-001442

PATIENT
  Age: 36 Year
  Sex: Female
  Weight: 79.365 kg

DRUGS (7)
  1. YAZ [Suspect]
     Indication: PREMENSTRUAL SYNDROME
     Dosage: UNK
     Dates: start: 20090910
  2. LIDODERM [Concomitant]
     Dosage: UNK UNK, PRN
  3. YASMIN [Suspect]
     Indication: PREMENSTRUAL SYNDROME
     Dosage: UNK
     Dates: start: 20081001, end: 20091201
  4. YASMIN [Suspect]
     Indication: ENDOMETRIOSIS
  5. TRAMADOL [Concomitant]
     Dosage: UNK UNK, PRN
  6. ROBAXIN [Concomitant]
     Dosage: UNK UNK, PRN
  7. YAZ [Suspect]
     Indication: ENDOMETRIOSIS

REACTIONS (1)
  - DEEP VEIN THROMBOSIS [None]
